FAERS Safety Report 16132036 (Version 1)
Quarter: 2019Q1

REPORT INFORMATION
  Report Type: Spontaneous
  Country: US (occurrence: US)
  Receive Date: 20190225
  Receipt Date: 20190225
  Transmission Date: 20190418
  Serious: No
  Sender: FDA-Public Use
  Company Number: None

PATIENT
  Age: 55 Year
  Sex: Female

DRUGS (1)
  1. KISQALI [Suspect]
     Active Substance: RIBOCICLIB
     Dates: start: 20190212

REACTIONS (7)
  - Abdominal distension [None]
  - Decreased appetite [None]
  - Dry mouth [None]
  - Constipation [None]
  - Fatigue [None]
  - Dyspepsia [None]
  - Diarrhoea [None]

NARRATIVE: CASE EVENT DATE: 20190212
